FAERS Safety Report 12644003 (Version 1)
Quarter: 2016Q3

REPORT INFORMATION
  Report Type: Spontaneous
  Country: US (occurrence: US)
  Receive Date: 20160811
  Receipt Date: 20160811
  Transmission Date: 20161109
  Serious: Yes (Other)
  Sender: FDA-Public Use
  Company Number: US-SA-2016SA147169

PATIENT
  Age: 72 Year
  Sex: Female

DRUGS (15)
  1. PRALUENT [Suspect]
     Active Substance: ALIROCUMAB
     Indication: TYPE IIA HYPERLIPIDAEMIA
     Route: 058
     Dates: start: 20160223
  2. FLEXTOUCH [Concomitant]
     Active Substance: DEVICE
  3. TRAMADOL HYDROCHLORIDE. [Concomitant]
     Active Substance: TRAMADOL HYDROCHLORIDE
  4. TORSEMIDE. [Concomitant]
     Active Substance: TORSEMIDE
  5. ZETIA [Concomitant]
     Active Substance: EZETIMIBE
  6. HYDRALAZINE [Concomitant]
     Active Substance: HYDRALAZINE HYDROCHLORIDE
  7. APIDRA SOLOSTAR [Concomitant]
     Active Substance: INSULIN GLULISINE
  8. BYSTOLIC [Concomitant]
     Active Substance: NEBIVOLOL HYDROCHLORIDE
  9. NIFEDICAL XL [Concomitant]
     Active Substance: NIFEDIPINE
  10. CLONIDINE. [Concomitant]
     Active Substance: CLONIDINE
  11. DULOXETINE. [Concomitant]
     Active Substance: DULOXETINE
  12. LATANOPROST. [Concomitant]
     Active Substance: LATANOPROST
     Dosage: SOL
  13. ALIROCUMAB PREFILLED PEN [Concomitant]
     Active Substance: ALIROCUMAB
     Indication: TYPE IIA HYPERLIPIDAEMIA
     Dates: start: 20160223
  14. SOLOSTAR [Concomitant]
     Active Substance: DEVICE
  15. LEVEMIR [Concomitant]
     Active Substance: INSULIN DETEMIR

REACTIONS (2)
  - Rhinitis [Not Recovered/Not Resolved]
  - Pulmonary congestion [Not Recovered/Not Resolved]

NARRATIVE: CASE EVENT DATE: 2016
